FAERS Safety Report 9214541 (Version 1)
Quarter: 2013Q2

REPORT INFORMATION
  Report Type: Spontaneous
  Country: FR (occurrence: FR)
  Receive Date: 20130405
  Receipt Date: 20130405
  Transmission Date: 20140414
  Serious: Yes (Other)
  Sender: FDA-Public Use
  Company Number: PHHY2013FR033015

PATIENT
  Age: 64 Year
  Sex: Male

DRUGS (6)
  1. TASIGNA [Suspect]
     Indication: CHRONIC MYELOID LEUKAEMIA
     Dosage: 800 MG, DAILY
     Dates: start: 20120209
  2. TASIGNA [Suspect]
     Dosage: 400 MG, DAILY
     Dates: end: 20120611
  3. FENOFIBRATE [Concomitant]
     Dosage: 200 MG, DAILY
  4. ATENOLOL [Concomitant]
     Dosage: 50 MG, DAILY
  5. PERINDOPRIL/INDAPAMIDE [Concomitant]
     Dosage: 1 DF, DAILY
  6. ZOLPIDEM [Concomitant]
     Dosage: 10 MG, DAILLY

REACTIONS (2)
  - Chest pain [Recovered/Resolved]
  - Abdominal pain [Recovered/Resolved]
